FAERS Safety Report 16593655 (Version 1)
Quarter: 2019Q3

REPORT INFORMATION
  Report Type: Spontaneous
  Country: GB (occurrence: GB)
  Receive Date: 20190718
  Receipt Date: 20190718
  Transmission Date: 20191004
  Serious: Yes (Other)
  Sender: FDA-Public Use
  Company Number: GB-MYLANLABS-2019M1066945

PATIENT
  Age: 64 Year
  Sex: Male
  Weight: 120 kg

DRUGS (9)
  1. DOXYCYCLINE. [Suspect]
     Active Substance: DOXYCYCLINE
     Indication: PRODUCT USED FOR UNKNOWN INDICATION
     Dosage: TAKE 2 NOW THEN ONE DAILY
     Dates: start: 20190124
  2. SALBUTAMOL [Concomitant]
     Active Substance: ALBUTEROL
     Dosage: 2 DOSAGE FORM, PRN
     Route: 055
     Dates: start: 20180720
  3. SEREFLO [Concomitant]
     Active Substance: FLUTICASONE PROPIONATE\SALMETEROL XINAFOATE
     Dosage: 4 DOSAGE FORM, QD
     Dates: start: 20180918, end: 20181122
  4. PARACETAMOL [Concomitant]
     Active Substance: ACETAMINOPHEN
     Dosage: TAKE 1 OR 2 4 TIMES/DAY
     Dates: start: 20180720
  5. FOSTAIR [Concomitant]
     Active Substance: BECLOMETHASONE\FORMOTEROL
     Dosage: TWO PUFFS TWICE DAILY
     Dates: start: 20181122
  6. PREDNISOLONE. [Concomitant]
     Active Substance: PREDNISOLONE
     Dosage: FOR 7 DAYS
     Dates: start: 20190124
  7. TRAMADOL. [Concomitant]
     Active Substance: TRAMADOL
     Dosage: 1 OR 2 WHEN REQUIRED (MAX OF EIGHT)
     Dates: start: 20180720
  8. LANSOPRAZOLE. [Concomitant]
     Active Substance: LANSOPRAZOLE
     Dosage: 1 DOSAGE FORM, QD
     Dates: start: 20180831
  9. ORLISTAT. [Concomitant]
     Active Substance: ORLISTAT
     Dosage: 3 DOSAGE FORM, QD
     Dates: start: 20181227, end: 20190124

REACTIONS (1)
  - Purpura [Unknown]

NARRATIVE: CASE EVENT DATE: 20190129
